FAERS Safety Report 18346553 (Version 1)
Quarter: 2020Q4

REPORT INFORMATION
  Report Type: Spontaneous
  Country: FR (occurrence: FR)
  Receive Date: 20201006
  Receipt Date: 20201006
  Transmission Date: 20210114
  Serious: Yes (Life-Threatening, Other)
  Sender: FDA-Public Use
  Company Number: FR-AUROBINDO-AUR-APL-2020-050144

PATIENT
  Age: 59 Year
  Sex: Male
  Weight: 86.5 kg

DRUGS (2)
  1. CEFEPIME [Suspect]
     Active Substance: CEFEPIME HYDROCHLORIDE
     Indication: ENTEROBACTER PNEUMONIA
     Dosage: 2 GRAM (2G ON 09/08 AND 09/09, 1G ON 09/10)
     Route: 042
     Dates: start: 20200908, end: 20200910
  2. LEVOFLOXACIN ARROW 5 MG/ML SOLUTION FOR INFUSION [Suspect]
     Active Substance: LEVOFLOXACIN
     Indication: ENTEROBACTER PNEUMONIA
     Dosage: 1000 MILLIGRAM
     Route: 041
     Dates: start: 20200906

REACTIONS (3)
  - Coma [Recovered/Resolved]
  - Status epilepticus [Recovered/Resolved]
  - Encephalopathy [Recovering/Resolving]

NARRATIVE: CASE EVENT DATE: 20200909
